FAERS Safety Report 23094371 (Version 2)
Quarter: 2023Q4

REPORT INFORMATION
  Report Type: Spontaneous
  Country: US (occurrence: None)
  Receive Date: 20231023
  Receipt Date: 20231206
  Transmission Date: 20240110
  Serious: No
  Sender: FDA-Public Use
  Company Number: 2023A238657

PATIENT
  Age: 19605 Day

DRUGS (2)
  1. SAPHNELO [Suspect]
     Active Substance: ANIFROLUMAB-FNIA
     Route: 042
     Dates: start: 20231016
  2. BENLYSTA [Suspect]
     Active Substance: BELIMUMAB

REACTIONS (4)
  - Fatigue [Recovered/Resolved]
  - Headache [Unknown]
  - Endocrine ophthalmopathy [Unknown]
  - Drug ineffective [Unknown]

NARRATIVE: CASE EVENT DATE: 20231016
